FAERS Safety Report 9206747 (Version 1)
Quarter: 2013Q1

REPORT INFORMATION
  Report Type: Spontaneous
  Country: US (occurrence: None)
  Receive Date: 20120718
  Receipt Date: 20120718
  Transmission Date: 20140127
  Serious: Yes (Hospitalization)
  Sender: FDA-Public Use
  Company Number: 21011SP023145

PATIENT
  Age: 57 Year
  Sex: Male

DRUGS (10)
  1. EPTIFIBATIDE [Suspect]
     Indication: PERCUTANEOUS CORONARY INTERVENTION
     Dosage: INBO
  2. ASPIRIN [Concomitant]
  3. METOPROLOL [Concomitant]
  4. LISINOPRIL [Concomitant]
  5. GLIPIZIDE [Concomitant]
  6. ATORVASTATIN [Concomitant]
  7. HEPARIN [Concomitant]
  8. AMIODARONE [Concomitant]
  9. LIDOCAINE [Concomitant]
  10. CLOPIDOGREL [Concomitant]

REACTIONS (1)
  - Thrombocytopenia [None]
